FAERS Safety Report 21965974 (Version 1)
Quarter: 2023Q1

REPORT INFORMATION
  Report Type: Spontaneous
  Country: GB (occurrence: GB)
  Receive Date: 20230208
  Receipt Date: 20230208
  Transmission Date: 20230418
  Serious: Yes (Life-Threatening, Disabling, Other)
  Sender: FDA-Public Use
  Company Number: GB-MHRA-MED-202301251713392590-RNMSZ

PATIENT
  Age: 52 Year
  Sex: Female
  Weight: 79 kg

DRUGS (9)
  1. CETIRIZINE [Suspect]
     Active Substance: CETIRIZINE HYDROCHLORIDE
     Indication: Urticaria chronic
     Dosage: 40 - 60MG PER DAY DERMATOLOGIST ADVISED; ;
     Dates: end: 20230125
  2. MONTELUKAST [Suspect]
     Active Substance: MONTELUKAST SODIUM
     Indication: Product used for unknown indication
  3. FAMOTIDINE [Suspect]
     Active Substance: FAMOTIDINE
     Indication: Product used for unknown indication
  4. SERTRALINE [Concomitant]
     Active Substance: SERTRALINE HYDROCHLORIDE
     Indication: Anxiety
  5. SERTRALINE [Concomitant]
     Active Substance: SERTRALINE HYDROCHLORIDE
     Indication: Depression
  6. ZOPICLONE [Concomitant]
     Active Substance: ZOPICLONE
     Indication: Anxiety
  7. ZOPICLONE [Concomitant]
     Active Substance: ZOPICLONE
     Indication: Depression
  8. DIAZEPAM [Concomitant]
     Active Substance: DIAZEPAM
     Indication: Anxiety
  9. DIAZEPAM [Concomitant]
     Active Substance: DIAZEPAM
     Indication: Depression

REACTIONS (2)
  - Suicidal ideation [Not Recovered/Not Resolved]
  - Medication error [Unknown]
